FAERS Safety Report 8336146 (Version 2)
Quarter: 2015Q1

REPORT INFORMATION
  Report Type: Report from Study
  Country: US (occurrence: AR)
  Receive Date: 20120113
  Receipt Date: 20150210
  Transmission Date: 20150721
  Serious: Yes (Death)
  Sender: FDA-Public Use
  Company Number: US-ROCHE-1028613

PATIENT
  Sex: Female

DRUGS (24)
  1. ALIMTA [Concomitant]
     Active Substance: PEMETREXED DISODIUM
     Route: 042
  2. VITAMIN B12 [Concomitant]
     Active Substance: CYANOCOBALAMIN
     Route: 058
  3. PROCRIT [Concomitant]
     Active Substance: ERYTHROPOIETIN
  4. COMPAZINE [Concomitant]
     Active Substance: PROCHLORPERAZINE MALEATE
  5. NEXIUM [Concomitant]
     Active Substance: ESOMEPRAZOLE MAGNESIUM
  6. CALCIUM CARBONATE. [Concomitant]
     Active Substance: CALCIUM CARBONATE
  7. AVASTIN [Suspect]
     Active Substance: BEVACIZUMAB
     Indication: LUNG NEOPLASM MALIGNANT
     Route: 042
     Dates: start: 20090223
  8. DECADRON [Concomitant]
     Active Substance: DEXAMETHASONE
     Route: 048
  9. LYRICA [Concomitant]
     Active Substance: PREGABALIN
     Route: 042
  10. TARCEVA [Concomitant]
     Active Substance: ERLOTINIB HYDROCHLORIDE
     Route: 048
  11. AVASTIN [Suspect]
     Active Substance: BEVACIZUMAB
     Indication: BONE CANCER
  12. ALIMTA [Concomitant]
     Active Substance: PEMETREXED DISODIUM
     Route: 042
  13. AVASTIN [Suspect]
     Active Substance: BEVACIZUMAB
     Indication: BONE CANCER
  14. NEULASTA [Suspect]
     Active Substance: PEGFILGRASTIM
     Indication: PRODUCT USED FOR UNKNOWN INDICATION
     Route: 058
  15. ROCEPHIN [Suspect]
     Active Substance: CEFTRIAXONE SODIUM
     Indication: PRODUCT USED FOR UNKNOWN INDICATION
     Route: 065
  16. CARBOPLATIN. [Concomitant]
     Active Substance: CARBOPLATIN
     Route: 042
     Dates: end: 20090622
  17. DECADRON [Concomitant]
     Active Substance: DEXAMETHASONE
     Route: 065
  18. DECADRON [Concomitant]
     Active Substance: DEXAMETHASONE
     Route: 042
  19. FOLIC ACID. [Concomitant]
     Active Substance: FOLIC ACID
     Route: 048
  20. LYRICA [Concomitant]
     Active Substance: PREGABALIN
     Route: 042
  21. ALOXI [Concomitant]
     Active Substance: PALONOSETRON HYDROCHLORIDE
     Route: 042
  22. ZOMETA [Concomitant]
     Active Substance: ZOLEDRONIC ACID
     Route: 042
  23. VICODIN [Concomitant]
     Active Substance: ACETAMINOPHEN\HYDROCODONE BITARTRATE
  24. ZOLPIDEM [Concomitant]
     Active Substance: ZOLPIDEM\ZOLPIDEM TARTRATE

REACTIONS (14)
  - Death [Fatal]
  - Malaise [Unknown]
  - Neck pain [Unknown]
  - Anxiety [Unknown]
  - White blood cell count decreased [Unknown]
  - Dizziness [Unknown]
  - Fear of death [Unknown]
  - Bone scan abnormal [Unknown]
  - Bone pain [Unknown]
  - Back pain [Unknown]
  - Stress [Unknown]
  - Musculoskeletal pain [Unknown]
  - Fatigue [Unknown]
  - Alopecia [Unknown]
